FAERS Safety Report 6942827-8 (Version None)
Quarter: 2010Q3

REPORT INFORMATION
  Report Type: 
  Country: None (occurrence: None)
  Receive Date: 20100825
  Receipt Date: 20100825
  Transmission Date: 20110219
  Serious: Yes (Other)
  Sender: FDA-Public Use
  Company Number: None

PATIENT
  Age: 68 Year
  Sex: Female
  Weight: 69.8539 kg

DRUGS (1)
  1. CYMBALTA [Suspect]
     Indication: NEUROPATHY PERIPHERAL
     Dosage: 10MG/5MG EVERYOTHERDAY
     Dates: start: 20090701

REACTIONS (17)
  - DISCOMFORT [None]
  - DIZZINESS [None]
  - DRUG WITHDRAWAL SYNDROME [None]
  - DRY EYE [None]
  - ECONOMIC PROBLEM [None]
  - HEADACHE [None]
  - HOT FLUSH [None]
  - INJURY [None]
  - INSOMNIA [None]
  - IRRITABILITY [None]
  - MENTAL DISORDER [None]
  - NAUSEA [None]
  - NEURALGIA [None]
  - PAIN [None]
  - PARAESTHESIA [None]
  - RHINORRHOEA [None]
  - UNEVALUABLE EVENT [None]
